FAERS Safety Report 4371128-X (Version None)
Quarter: 2004Q2

REPORT INFORMATION
  Report Type: 
  Country: None (occurrence: None)
  Receive Date: 20040604
  Receipt Date: 20020904
  Transmission Date: 20050107
  Serious: Yes (Hospitalization, Other)
  Sender: FDA-Public Use
  Company Number: US-MERCK-0209USA00434

PATIENT
  Age: 36 Year
  Sex: Male
  Weight: 102 kg

DRUGS (5)
  1. VICODIN [Concomitant]
     Route: 065
  2. VIOXX [Suspect]
     Indication: BACK PAIN
     Route: 048
     Dates: start: 20020201, end: 20020301
  3. VIOXX [Suspect]
     Route: 048
     Dates: start: 20020201, end: 20020301
  4. VIOXX [Suspect]
     Indication: MUSCLE CRAMP
     Route: 048
     Dates: start: 20020201, end: 20020301
  5. VIOXX [Suspect]
     Route: 048
     Dates: start: 20020201, end: 20020301

REACTIONS (21)
  - AGE INDETERMINATE MYOCARDIAL INFARCTION [None]
  - ASTHENIA [None]
  - BLOOD PRESSURE INCREASED [None]
  - BURNING SENSATION [None]
  - CHEST PAIN [None]
  - CHILLS [None]
  - COLD SWEAT [None]
  - DIZZINESS POSTURAL [None]
  - DYSPNOEA [None]
  - EXTRASYSTOLES [None]
  - FEELING HOT AND COLD [None]
  - GASTROOESOPHAGEAL REFLUX DISEASE [None]
  - HYPERHIDROSIS [None]
  - INJURY [None]
  - INTERVERTEBRAL DISC DISORDER [None]
  - INTERVERTEBRAL DISC PROTRUSION [None]
  - MUSCULOSKELETAL STIFFNESS [None]
  - NAUSEA [None]
  - PALLOR [None]
  - PALPITATIONS [None]
  - SLEEP DISORDER [None]
